FAERS Safety Report 9529541 (Version 1)
Quarter: 2013Q3

REPORT INFORMATION
  Report Type: Spontaneous
  Country: KZ (occurrence: KZ)
  Receive Date: 20130917
  Receipt Date: 20130917
  Transmission Date: 20140515
  Serious: Yes (Other)
  Sender: FDA-Public Use
  Company Number: PHHY2013KZ102929

PATIENT
  Age: 32 Year
  Sex: Male

DRUGS (3)
  1. TASIGNA [Suspect]
     Indication: CHRONIC MYELOID LEUKAEMIA
     Dosage: 200 MG, TID
     Route: 048
     Dates: start: 201301, end: 201308
  2. ESSENTIALE FORTE [Concomitant]
     Indication: HEPATITIS
     Dosage: 600 MG, TID
     Route: 048
  3. VITAMIN B [Concomitant]

REACTIONS (7)
  - Haemorrhage [Recovered/Resolved]
  - Blast crisis in myelogenous leukaemia [Unknown]
  - Chronic myeloid leukaemia [Unknown]
  - Malignant neoplasm progression [Unknown]
  - Leukocytosis [Unknown]
  - Drug resistance [Unknown]
  - Thrombocytopenia [Unknown]
